FAERS Safety Report 8938506 (Version 2)
Quarter: 2013Q1

REPORT INFORMATION
  Report Type: Report from Study
  Country: BR (occurrence: BR)
  Receive Date: 20121203
  Receipt Date: 20130101
  Transmission Date: 20140127
  Serious: Yes (Hospitalization)
  Sender: FDA-Public Use
  Company Number: PHHO2012BR017190

PATIENT
  Age: 43 Year
  Sex: Female
  Weight: 67 kg

DRUGS (2)
  1. AFINITOR [Suspect]
     Indication: PANCREATIC NEUROENDOCRINE TUMOUR
     Dosage: 10 MG, UNK
     Route: 048
     Dates: start: 20120427, end: 20121122
  2. SOM230 [Suspect]
     Indication: PANCREATIC NEUROENDOCRINE TUMOUR
     Dosage: 60 MG, UNK
     Route: 030
     Dates: start: 20120427, end: 20121112

REACTIONS (1)
  - Pancreatitis acute [Recovered/Resolved]
